FAERS Safety Report 13911314 (Version 1)
Quarter: 2017Q3

REPORT INFORMATION
  Report Type: Spontaneous
  Country: DE (occurrence: DE)
  Receive Date: 20170828
  Receipt Date: 20170828
  Transmission Date: 20171127
  Serious: Yes (Other)
  Sender: FDA-Public Use
  Company Number: GXKR2017DE003308

PATIENT
  Sex: Female
  Weight: 81 kg

DRUGS (1)
  1. SIMVASTATIN. [Suspect]
     Active Substance: SIMVASTATIN
     Indication: HYPERLIPIDAEMIA
     Route: 048
     Dates: start: 200710, end: 200809

REACTIONS (3)
  - Arthralgia [Recovered/Resolved]
  - Myalgia [Recovered/Resolved]
  - Gait inability [Recovered/Resolved]
